FAERS Safety Report 15536403 (Version 1)
Quarter: 2018Q4

REPORT INFORMATION
  Report Type: Spontaneous
  Country: GB (occurrence: GB)
  Receive Date: 20181022
  Receipt Date: 20181022
  Transmission Date: 20190205
  Serious: Yes (Other)
  Sender: FDA-Public Use
  Company Number: GB-SA-2018SA288537

PATIENT
  Age: 13 Year
  Sex: Female

DRUGS (5)
  1. CYCLOSPORINE. [Concomitant]
     Active Substance: CYCLOSPORINE
     Indication: PROPHYLAXIS AGAINST GRAFT VERSUS HOST DISEASE
     Dosage: UNK
     Dates: start: 2014
  2. ANAKINRA [Concomitant]
     Active Substance: ANAKINRA
     Indication: ARTHRITIS
  3. ALEMTUZUMAB [Suspect]
     Active Substance: ALEMTUZUMAB
     Indication: BONE MARROW CONDITIONING REGIMEN
     Dosage: 0.2 MG/KG, QD, FROM DAYS 8 TO 4
     Route: 065
     Dates: start: 2014
  4. MELPHALAN. [Suspect]
     Active Substance: MELPHALAN
     Indication: BONE MARROW CONDITIONING REGIMEN
     Dosage: 140 MG/M2, QD, DAY 3
     Route: 065
     Dates: start: 2014, end: 2014
  5. FLUDARABINE PHOSPHATE. [Suspect]
     Active Substance: FLUDARABINE PHOSPHATE
     Indication: BONE MARROW CONDITIONING REGIMEN
     Dosage: 30 MG/M2, QD, FROM DAYS 7 TO 3
     Route: 065
     Dates: start: 2014

REACTIONS (5)
  - Off label use [Unknown]
  - Osteonecrosis [Unknown]
  - Herpes zoster [Unknown]
  - Adenovirus infection [Unknown]
  - Serratia infection [Unknown]
